FAERS Safety Report 20860752 (Version 1)
Quarter: 2022Q2

REPORT INFORMATION
  Report Type: Spontaneous
  Country: GB (occurrence: GB)
  Receive Date: 20220523
  Receipt Date: 20220523
  Transmission Date: 20220721
  Serious: Yes (Other)
  Sender: FDA-Public Use
  Company Number: GB-MYLANLABS-2022M1037475

PATIENT
  Sex: Male

DRUGS (1)
  1. CLOZARIL [Suspect]
     Active Substance: CLOZAPINE
     Indication: Schizophrenia
     Dosage: UNK
     Route: 048
     Dates: start: 20010701

REACTIONS (8)
  - Haemorrhage [Unknown]
  - Hodgkin^s disease [Unknown]
  - Schizophrenia [Unknown]
  - Psychological trauma [Unknown]
  - Drooling [Unknown]
  - Constipation [Unknown]
  - Dizziness [Unknown]
  - Overdose [Unknown]
